FAERS Safety Report 10034155 (Version 1)
Quarter: 2014Q1

REPORT INFORMATION
  Report Type: Spontaneous
  Country: US (occurrence: None)
  Receive Date: 20140324
  Receipt Date: 20140324
  Transmission Date: 20141002
  Serious: Yes (Other)
  Sender: FDA-Public Use
  Company Number: None

PATIENT
  Sex: Female

DRUGS (1)
  1. CIMZIA [Suspect]
     Indication: RHEUMATOID ARTHRITIS
     Dosage: STARTED ABOUT 2.5 MONTHS AGO??200 MG EVERY 2 WEEKS
     Route: 058

REACTIONS (5)
  - Arthralgia [None]
  - Arthralgia [None]
  - Back pain [None]
  - Colitis [None]
  - Urinary incontinence [None]
